FAERS Safety Report 13440608 (Version 1)
Quarter: 2017Q2

REPORT INFORMATION
  Report Type: Report from Study
  Country: None (occurrence: US)
  Receive Date: 20170413
  Receipt Date: 20170413
  Transmission Date: 20170830
  Serious: Yes (Other)
  Sender: FDA-Public Use
  Company Number: US-ABBVIE-17K-163-1854327-00

PATIENT
  Age: 40 Year
  Sex: Female
  Weight: 52.66 kg

DRUGS (10)
  1. HYDROCODONE [Concomitant]
     Active Substance: HYDROCODONE
     Indication: PAIN
  2. CLONIDINE. [Concomitant]
     Active Substance: CLONIDINE
     Indication: DEPRESSION
  3. WELLBUTRIN [Concomitant]
     Active Substance: BUPROPION HYDROCHLORIDE
     Indication: ANXIETY
  4. CLONIDINE. [Concomitant]
     Active Substance: CLONIDINE
     Indication: ANXIETY
  5. HUMIRA [Suspect]
     Active Substance: ADALIMUMAB
     Indication: ANKYLOSING SPONDYLITIS
     Route: 058
     Dates: start: 201509, end: 201609
  6. IMITREX [Concomitant]
     Active Substance: SUMATRIPTAN SUCCINATE
     Indication: ANKYLOSING SPONDYLITIS
  7. ZOLOFT [Concomitant]
     Active Substance: SERTRALINE HYDROCHLORIDE
     Indication: ANXIETY
  8. ZOLOFT [Concomitant]
     Active Substance: SERTRALINE HYDROCHLORIDE
     Indication: DEPRESSION
  9. HUMIRA [Suspect]
     Active Substance: ADALIMUMAB
     Route: 058
     Dates: start: 201610
  10. WELLBUTRIN [Concomitant]
     Active Substance: BUPROPION HYDROCHLORIDE
     Indication: DEPRESSION

REACTIONS (8)
  - Impaired healing [Recovered/Resolved]
  - Oral mucosal discolouration [Recovered/Resolved]
  - Oropharyngeal blistering [Recovered/Resolved]
  - Oral mucosal discolouration [Recovered/Resolved]
  - Post procedural complication [Recovered/Resolved]
  - Ankylosing spondylitis [Recovering/Resolving]
  - Tonsillitis [Recovered/Resolved]
  - Pharyngeal inflammation [Recovered/Resolved]

NARRATIVE: CASE EVENT DATE: 201603
